FAERS Safety Report 9813040 (Version 2)
Quarter: 2014Q1

REPORT INFORMATION
  Report Type: Spontaneous
  Country: SE (occurrence: SE)
  Receive Date: 20140113
  Receipt Date: 20140307
  Transmission Date: 20141002
  Serious: Yes (Hospitalization)
  Sender: FDA-Public Use
  Company Number: SE-NOVOPROD-397260

PATIENT
  Sex: Female

DRUGS (4)
  1. NOVORAPID FLEXPEN [Suspect]
     Indication: TYPE 2 DIABETES MELLITUS
     Dosage: 10-15 IU
     Route: 065
     Dates: start: 2005
  2. FURIX [Suspect]
     Indication: PRODUCT USED FOR UNKNOWN INDICATION
     Dosage: 30 MG, QD
     Route: 065
  3. WARAN [Concomitant]
     Indication: PULMONARY EMBOLISM
     Dosage: 2.5 MG (1.5 TAB MONDAY, WEDNESDAY, FRIDAY AND 1 TABLET THE OTHER DAYS OF THE WEEK)
     Route: 048
  4. CANDESARTAN [Concomitant]
     Indication: HYPERTENSION
     Dosage: 8 MG, QD
     Route: 048

REACTIONS (5)
  - Fluid retention [Unknown]
  - Weight decreased [Unknown]
  - Contusion [Not Recovered/Not Resolved]
  - Skin mass [Not Recovered/Not Resolved]
  - Blood glucose fluctuation [Not Recovered/Not Resolved]
